FAERS Safety Report 8320681-X (Version None)
Quarter: 2012Q2

REPORT INFORMATION
  Report Type: 
  Country: None (occurrence: None)
  Receive Date: 20120430
  Receipt Date: 20120419
  Transmission Date: 20120825
  Serious: Yes (Hospitalization)
  Sender: FDA-Public Use
  Company Number: US-CELGENEUS-163-21880-12042649

PATIENT
  Sex: Female
  Weight: 58.6 kg

DRUGS (2)
  1. REVLIMID [Suspect]
     Indication: MULTIPLE MYELOMA
     Dosage: 25 MILLIGRAM
     Route: 048
     Dates: start: 20120314
  2. DEXAMETHASONE [Concomitant]
     Route: 065

REACTIONS (4)
  - HEART RATE IRREGULAR [None]
  - INSOMNIA [None]
  - CONSTIPATION [None]
  - ANAEMIA [None]
